FAERS Safety Report 17120105 (Version 1)
Quarter: 2019Q4

REPORT INFORMATION
  Report Type: Spontaneous
  Country: JP (occurrence: JP)
  Receive Date: 20191206
  Receipt Date: 20191206
  Transmission Date: 20200122
  Serious: Yes (Other)
  Sender: FDA-Public Use
  Company Number: NVSJ2019JP004926

PATIENT
  Age: 39 Year
  Sex: Male

DRUGS (2)
  1. TEGRETOL [Suspect]
     Active Substance: CARBAMAZEPINE
     Indication: TUBEROUS SCLEROSIS COMPLEX
     Dosage: 30 MG,UNK
     Route: 048
  2. AFINITOR [Suspect]
     Active Substance: EVEROLIMUS
     Indication: TUBEROUS SCLEROSIS COMPLEX
     Dosage: 2.5 MG,UNK
     Route: 048

REACTIONS (4)
  - Epilepsy [Unknown]
  - Sleep deficit [Unknown]
  - Drug ineffective [Unknown]
  - Asthenia [Unknown]
